FAERS Safety Report 8288297-1 (Version None)
Quarter: 2012Q2

REPORT INFORMATION
  Report Type: 
  Country: None (occurrence: None)
  Receive Date: 20120416
  Receipt Date: 20120410
  Transmission Date: 20120825
  Serious: Yes (Hospitalization, Other)
  Sender: FDA-Public Use
  Company Number: PHHY2012FR031086

PATIENT
  Sex: Male

DRUGS (11)
  1. BENAZEPRIL HYDROCHLORIDE [Suspect]
     Route: 048
     Dates: end: 20120226
  2. POTASSIUM CHLORIDE [Suspect]
     Route: 048
     Dates: start: 20120217, end: 20120227
  3. ALPRAZOLAM [Suspect]
     Route: 048
     Dates: start: 20120225, end: 20120228
  4. TRAMADOL HCL [Concomitant]
  5. ATARAX [Suspect]
     Route: 048
     Dates: start: 20120217, end: 20120227
  6. ACETAMINOPHEN [Concomitant]
  7. BISOPROLOL [Concomitant]
  8. AMOXICILLIN AND CLAVULANATE POTASSIUM [Suspect]
     Indication: ERYSIPELAS
     Dosage: 2 G, TID
     Route: 048
     Dates: start: 20120222, end: 20120227
  9. TRAMADOL HCL [Concomitant]
  10. TAZOCILLINE [Suspect]
     Indication: ERYSIPELAS
  11. PYOSTACINE [Suspect]
     Dosage: 1 G, QD
     Route: 048
     Dates: start: 20120227, end: 20120229

REACTIONS (3)
  - RENAL FAILURE ACUTE [None]
  - URTICARIA [None]
  - ERYSIPELAS [None]
